FAERS Safety Report 9842091 (Version 1)
Quarter: 2014Q1

REPORT INFORMATION
  Report Type: Other
  Country: IT (occurrence: IT)
  Receive Date: 20140124
  Receipt Date: 20140124
  Transmission Date: 20141002
  Serious: Yes (Hospitalization, Other)
  Sender: FDA-Public Use
  Company Number: IT-BRISTOL-MYERS SQUIBB COMPANY-20045704

PATIENT
  Age: 35 Year
  Sex: Male

DRUGS (6)
  1. CISPLATIN [Suspect]
     Indication: SEMINOMA
  2. ETOPOSIDE [Suspect]
     Indication: SEMINOMA
  3. BLEOMYCIN SULFATE [Suspect]
     Indication: SEMINOMA
  4. TENOFOVIR DF + EMTRICITABINE [Suspect]
     Indication: ANTIRETROVIRAL THERAPY
     Dates: start: 201203
  5. DARUNAVIR [Suspect]
     Indication: ANTIRETROVIRAL THERAPY
     Dates: start: 201203
  6. RITONAVIR [Suspect]
     Indication: ANTIRETROVIRAL THERAPY
     Dates: start: 201203

REACTIONS (4)
  - Rash pustular [Recovering/Resolving]
  - Pharyngitis streptococcal [Recovered/Resolved]
  - Febrile neutropenia [Unknown]
  - Herpes dermatitis [Unknown]
